FAERS Safety Report 5613646-X (Version None)
Quarter: 2008Q1

REPORT INFORMATION
  Report Type: 
  Country: None (occurrence: None)
  Receive Date: 20080129
  Receipt Date: 20080114
  Transmission Date: 20080703
  Serious: Yes (Other)
  Sender: FDA-Public Use
  Company Number: 44304

PATIENT
  Sex: Male

DRUGS (1)
  1. VINBLASTINE SULFATE [Suspect]
     Indication: BLADDER CANCER
     Dosage: 10MG
     Dates: start: 20080114

REACTIONS (3)
  - ACCIDENTAL EXPOSURE [None]
  - EXPIRED DRUG ADMINISTERED [None]
  - MEDICATION ERROR [None]
